FAERS Safety Report 24878561 (Version 1)
Quarter: 2025Q1

REPORT INFORMATION
  Report Type: Spontaneous
  Country: US (occurrence: None)
  Receive Date: 20250122
  Receipt Date: 20250122
  Transmission Date: 20250408
  Serious: Yes (Other)
  Sender: FDA-CTU
  Company Number: None

PATIENT
  Age: 62 Year
  Sex: Female
  Weight: 76.5 kg

DRUGS (1)
  1. MOUNJARO [Suspect]
     Active Substance: TIRZEPATIDE
     Indication: Diabetes mellitus
     Dates: end: 20250107

REACTIONS (4)
  - Drug ineffective [None]
  - Mood swings [None]
  - Irritability [None]
  - Irritable bowel syndrome [None]

NARRATIVE: CASE EVENT DATE: 19620530
